FAERS Safety Report 7570479-5 (Version None)
Quarter: 2011Q2

REPORT INFORMATION
  Report Type: 
  Country: None (occurrence: None)
  Receive Date: 20110624
  Receipt Date: 20110615
  Transmission Date: 20111010
  Serious: Yes (Hospitalization)
  Sender: FDA-Public Use
  Company Number: AT-ASTRAZENECA-2011SE36228

PATIENT
  Age: 24544 Day
  Sex: Female
  Weight: 68 kg

DRUGS (6)
  1. ARIMIDEX [Suspect]
     Indication: BREAST CANCER
     Route: 048
     Dates: start: 20060530, end: 20110502
  2. XEFO [Concomitant]
     Indication: PAIN
     Dosage: AS REQUIRED
     Route: 048
  3. LIMBITROL [Concomitant]
     Indication: ANTIDEPRESSANT THERAPY
     Route: 048
  4. EUTHYROX [Concomitant]
     Indication: HYPOTHYROIDISM
     Route: 048
  5. PANTOPRAZOLE SODIUM [Concomitant]
     Indication: GASTRITIS PROPHYLAXIS
     Route: 048
  6. NEROBIN FORTE [Concomitant]
     Indication: VITAMIN B COMPLEX DEFICIENCY
     Route: 048

REACTIONS (2)
  - PAIN IN EXTREMITY [None]
  - MUSCULOSKELETAL PAIN [None]
